FAERS Safety Report 7003827-5 (Version None)
Quarter: 2010Q3

REPORT INFORMATION
  Report Type: 
  Country: None (occurrence: None)
  Receive Date: 20100920
  Receipt Date: 20091209
  Transmission Date: 20110219
  Serious: No
  Sender: FDA-Public Use
  Company Number: US-WYE-H12594109

PATIENT
  Sex: Female

DRUGS (3)
  1. PRISTIQ [Suspect]
     Indication: DEPRESSION
     Route: 048
     Dates: start: 20080101
  2. PRISTIQ [Suspect]
     Dosage: ^TITRATED UP TO 100 MG DAILY
     Route: 048
  3. ETHANOL [Suspect]
     Dosage: ^TWO ALCOHOLIC DRINKS^
     Route: 048

REACTIONS (1)
  - ABDOMINAL PAIN UPPER [None]
